FAERS Safety Report 7647485-5 (Version None)
Quarter: 2011Q3

REPORT INFORMATION
  Report Type: 
  Country: None (occurrence: None)
  Receive Date: 20110801
  Receipt Date: 20110714
  Transmission Date: 20111222
  Serious: Yes (Hospitalization)
  Sender: FDA-Public Use
  Company Number: US-GLAXOSMITHKLINE-A0868982A

PATIENT
  Age: 66 Year
  Sex: Female
  Weight: 100 kg

DRUGS (1)
  1. AVANDIA [Suspect]
     Indication: GLUCOSE TOLERANCE IMPAIRED
     Dosage: 4MG PER DAY
     Route: 048
     Dates: start: 20060801, end: 20070524

REACTIONS (8)
  - TRICUSPID VALVE DISEASE [None]
  - OEDEMA [None]
  - ATRIAL FIBRILLATION [None]
  - MITRAL VALVE DISEASE [None]
  - CARDIAC FAILURE CONGESTIVE [None]
  - CARDIAC VALVE DISEASE [None]
  - CATARACT [None]
  - TRANSIENT ISCHAEMIC ATTACK [None]
